FAERS Safety Report 18747961 (Version 1)
Quarter: 2021Q1

REPORT INFORMATION
  Report Type: Spontaneous
  Country: FR (occurrence: FR)
  Receive Date: 20210115
  Receipt Date: 20210115
  Transmission Date: 20210419
  Serious: Yes (Death)
  Sender: FDA-Public Use
  Company Number: FR-ALSI-2020000567

PATIENT
  Age: 62 Year
  Sex: Male

DRUGS (2)
  1. OXYGEN. [Suspect]
     Active Substance: OXYGEN
     Indication: PRODUCT USED FOR UNKNOWN INDICATION
     Route: 055
  2. OXYGEN. [Suspect]
     Active Substance: OXYGEN
     Route: 055
     Dates: start: 20140818

REACTIONS (3)
  - Accident [Fatal]
  - Thermal burn [Fatal]
  - Device leakage [Fatal]
